FAERS Safety Report 24047781 (Version 1)
Quarter: 2024Q3

REPORT INFORMATION
  Report Type: Spontaneous
  Country: CA (occurrence: CA)
  Receive Date: 20240703
  Receipt Date: 20240703
  Transmission Date: 20241017
  Serious: Yes (Hospitalization)
  Sender: DAIICHI
  Company Number: CA-AstraZeneca-2024A146782

PATIENT
  Sex: Female
  Weight: 87 kg

DRUGS (1)
  1. TRASTUZUMAB DERUXTECAN [Suspect]
     Active Substance: TRASTUZUMAB DERUXTECAN
     Indication: Breast cancer metastatic
     Dosage: 469.8 MG, ONCE EVERY 3 WK
     Route: 042

REACTIONS (2)
  - Infection [Unknown]
  - Nasopharyngitis [Unknown]
